FAERS Safety Report 19751014 (Version 1)
Quarter: 2021Q3

REPORT INFORMATION
  Report Type: Spontaneous
  Country: US (occurrence: US)
  Receive Date: 20210826
  Receipt Date: 20210826
  Transmission Date: 20211014
  Serious: Yes (Hospitalization, Disabling)
  Sender: FDA-Public Use
  Company Number: US-MYLANLABS-2021M1056314

PATIENT
  Age: 16 Year
  Sex: Male
  Weight: 44 kg

DRUGS (8)
  1. EPINEPHRINE. [Concomitant]
     Active Substance: EPINEPHRINE
     Indication: PRODUCT USED FOR UNKNOWN INDICATION
     Dosage: DOSE: EPINEPHRINE 1:200,000
     Route: 008
  2. LIDOCAINE. [Suspect]
     Active Substance: LIDOCAINE
     Indication: EPIDURAL ANAESTHESIA
     Dosage: 3 MILLILITER
     Route: 008
  3. PROPOFOL. [Suspect]
     Active Substance: PROPOFOL
     Indication: EPIDURAL ANAESTHESIA
     Dosage: INFUSION
     Route: 008
  4. ROCURONIUM [Suspect]
     Active Substance: ROCURONIUM BROMIDE
     Indication: EPIDURAL ANAESTHESIA
     Dosage: UNK
     Route: 008
  5. ROPIVACAINE. [Suspect]
     Active Substance: ROPIVACAINE HYDROCHLORIDE
     Indication: EPIDURAL ANAESTHESIA
     Dosage: BOLUS 8ML
     Route: 008
  6. ROPIVACAINE. [Suspect]
     Active Substance: ROPIVACAINE HYDROCHLORIDE
     Dosage: INFUSION
     Route: 008
  7. SEVOFLURANE. [Suspect]
     Active Substance: SEVOFLURANE
     Indication: EPIDURAL ANAESTHESIA
     Dosage: INFUSION
     Route: 008
  8. FENTANYL. [Suspect]
     Active Substance: FENTANYL
     Indication: EPIDURAL ANAESTHESIA
     Dosage: UNK
     Route: 008

REACTIONS (5)
  - Extradural haematoma [Unknown]
  - Spinal cord oedema [Unknown]
  - Paraplegia [Not Recovered/Not Resolved]
  - Spinal cord infarction [Unknown]
  - Hypotension [Recovering/Resolving]
